FAERS Safety Report 7134804-1 (Version None)
Quarter: 2010Q4

REPORT INFORMATION
  Report Type: 
  Country: None (occurrence: None)
  Receive Date: 20101203
  Receipt Date: 20101124
  Transmission Date: 20110411
  Serious: Yes (Disabling)
  Sender: FDA-Public Use
  Company Number: DE-JNJFOC-20100210006

PATIENT
  Age: 66 Year
  Sex: Female

DRUGS (3)
  1. TAVANIC [Suspect]
     Indication: URINARY TRACT INFECTION
     Route: 048
  2. CLEXANE [Suspect]
     Indication: THROMBOSIS PROPHYLAXIS
     Route: 058
  3. EMBOLEX [Concomitant]
     Indication: FOOT OPERATION
     Route: 065

REACTIONS (3)
  - CHOLESTATIC LIVER INJURY [None]
  - GASTROINTESTINAL DISORDER [None]
  - HEPATOTOXICITY [None]
